FAERS Safety Report 13860610 (Version 1)
Quarter: 2017Q3

REPORT INFORMATION
  Report Type: Spontaneous
  Country: US (occurrence: US)
  Receive Date: 20170811
  Receipt Date: 20170811
  Transmission Date: 20171127
  Serious: Yes (Hospitalization)
  Sender: FDA-Public Use
  Company Number: None

PATIENT
  Age: 48 Year
  Sex: Female

DRUGS (26)
  1. VALPRIOC ACID [Concomitant]
  2. CHOLESTYRAMINE. [Concomitant]
     Active Substance: CHOLESTYRAMINE
  3. NAPROXEN. [Concomitant]
     Active Substance: NAPROXEN
  4. CAPECITABINE 500 MG [Suspect]
     Active Substance: CAPECITABINE
     Indication: BREAST CANCER
     Route: 048
     Dates: start: 20170503
  5. MORPHINE [Concomitant]
     Active Substance: MORPHINE
  6. METOPROLOL. [Concomitant]
     Active Substance: METOPROLOL
  7. LORAZEPAM. [Concomitant]
     Active Substance: LORAZEPAM
  8. DEXAMETHASONE. [Concomitant]
     Active Substance: DEXAMETHASONE
  9. KCL [Concomitant]
     Active Substance: POTASSIUM CHLORIDE
  10. OXYCODONE [Concomitant]
     Active Substance: OXYCODONE
  11. LEVOFLOXACIN. [Concomitant]
     Active Substance: LEVOFLOXACIN
  12. TRANSDERM [Concomitant]
  13. DICYCLOMINE [Concomitant]
     Active Substance: DICYCLOMINE HYDROCHLORIDE
  14. TIZANIDINE. [Concomitant]
     Active Substance: TIZANIDINE
  15. OMEPRAZOLE. [Concomitant]
     Active Substance: OMEPRAZOLE
  16. CETIRIZINE [Concomitant]
     Active Substance: CETIRIZINE HYDROCHLORIDE
  17. TRAMADOL. [Concomitant]
     Active Substance: TRAMADOL
  18. LYRICA [Concomitant]
     Active Substance: PREGABALIN
  19. DIAZEPAM. [Concomitant]
     Active Substance: DIAZEPAM
  20. HALOPERIDOL. [Concomitant]
     Active Substance: HALOPERIDOL
  21. CIPRO [Concomitant]
     Active Substance: CIPROFLOXACIN HYDROCHLORIDE
  22. METRONIDAZOLE. [Concomitant]
     Active Substance: METRONIDAZOLE
  23. PROCHLORPERAZINE. [Concomitant]
     Active Substance: PROCHLORPERAZINE
  24. ONDANSETRON [Concomitant]
     Active Substance: ONDANSETRON
  25. BUMETANIDE. [Concomitant]
     Active Substance: BUMETANIDE
  26. PROVENTIL [Concomitant]
     Active Substance: ALBUTEROL

REACTIONS (3)
  - Dehydration [None]
  - Therapy change [None]
  - Diarrhoea [None]

NARRATIVE: CASE EVENT DATE: 201706
